FAERS Safety Report 9363430 (Version 1)
Quarter: 2013Q2

REPORT INFORMATION
  Report Type: Spontaneous
  Country: GB (occurrence: GB)
  Receive Date: 20130624
  Receipt Date: 20130624
  Transmission Date: 20140414
  Serious: Yes (Other)
  Sender: FDA-Public Use
  Company Number: GB-MERCK-1306GBR006909

PATIENT
  Age: 77 Year
  Sex: Female

DRUGS (6)
  1. TRUSOPT 20 MG/ML EYE DROPS, SOLUTION [Suspect]
     Indication: GLAUCOMA
     Dosage: UNK, BID
     Route: 047
  2. GANFORT [Concomitant]
     Indication: INTRAOCULAR PRESSURE INCREASED
     Dosage: ONCE DAILY TO BOTH EYES
     Route: 047
  3. ALPHAGAN [Concomitant]
     Indication: INTRAOCULAR PRESSURE INCREASED
     Dosage: TWICE DAILY TO BOTH EYES
     Route: 047
  4. DEXAMETHASONE [Concomitant]
     Indication: ULCERATIVE KERATITIS
     Dosage: 4 TIMES DAILY ON BOTH EYES
     Route: 061
  5. LOTEMAX [Concomitant]
     Dosage: TWICE DAILY, BOTH EYES
     Route: 047
  6. CYCLOPHOSPHAMIDE [Concomitant]
     Indication: INTRAOCULAR PRESSURE INCREASED
     Dosage: 50 MG, QD
     Route: 042

REACTIONS (3)
  - Glaucoma surgery [Unknown]
  - Scotoma [Unknown]
  - Drug ineffective [Unknown]
